FAERS Safety Report 10727252 (Version 1)
Quarter: 2015Q1

REPORT INFORMATION
  Report Type: Spontaneous
  Country: ES (occurrence: DE)
  Receive Date: 20150121
  Receipt Date: 20150121
  Transmission Date: 20150721
  Serious: Yes (Other)
  Sender: FDA-Public Use
  Company Number: DE-FRI-1000073804

PATIENT
  Age: 52 Year
  Sex: Male

DRUGS (3)
  1. ACLIDINIUM [Suspect]
     Active Substance: ACLIDINIUM BROMIDE
     Dosage: 644 MCG
     Dates: start: 20141008
  2. VIANI FORTE [Concomitant]
     Active Substance: FLUTICASONE PROPIONATE\SALMETEROL XINAFOATE
     Dates: start: 20141008
  3. ZOPICLONE [Concomitant]
     Active Substance: ZOPICLONE
     Dates: start: 20141008

REACTIONS (2)
  - Discomfort [Unknown]
  - Myocardial infarction [Unknown]

NARRATIVE: CASE EVENT DATE: 20141009
